FAERS Safety Report 8623764-X (Version None)
Quarter: 2012Q3

REPORT INFORMATION
  Report Type: 
  Country: None (occurrence: None)
  Receive Date: 20120827
  Receipt Date: 20120816
  Transmission Date: 20120928
  Serious: Yes (Hospitalization)
  Sender: FDA-Public Use
  Company Number: US-ASTRAZENECA-2012SE49950

PATIENT
  Age: 29 Year
  Sex: Female

DRUGS (5)
  1. SYNTHROID [Concomitant]
     Indication: HYPOTHYROIDISM
     Dosage: 100 QD, 125 MCG
     Route: 048
  2. CALCIUM [Concomitant]
     Indication: BLOOD CALCIUM DECREASED
     Dosage: 500/200 QD
     Route: 048
  3. IMODIUM [Concomitant]
     Indication: DIARRHOEA
     Route: 048
  4. CAPRELSA [Suspect]
     Indication: THYROID CANCER
     Route: 048
     Dates: start: 20120702
  5. VITAMIN D [Concomitant]
     Dosage: QD
     Route: 048

REACTIONS (9)
  - BLOOD ELECTROLYTES DECREASED [None]
  - NAUSEA [None]
  - CONSTIPATION [None]
  - DIARRHOEA [None]
  - BLOOD PRESSURE INCREASED [None]
  - RASH [None]
  - BLOOD THYROID STIMULATING HORMONE INCREASED [None]
  - TUMOUR LYSIS SYNDROME [None]
  - VOMITING [None]
